FAERS Safety Report 10236965 (Version 1)
Quarter: 2014Q2

REPORT INFORMATION
  Report Type: Spontaneous
  Country: KR (occurrence: KR)
  Receive Date: 20140613
  Receipt Date: 20140613
  Transmission Date: 20141212
  Serious: Yes (Other)
  Sender: FDA-Public Use
  Company Number: KR-BAYER-2014-082650

PATIENT
  Sex: 0

DRUGS (1)
  1. NEXAVAR [Suspect]

REACTIONS (2)
  - Adrenal insufficiency [None]
  - Dysphonia [None]
